FAERS Safety Report 11289039 (Version 2)
Quarter: 2015Q3

REPORT INFORMATION
  Report Type: Spontaneous
  Country: US (occurrence: None)
  Receive Date: 20150713
  Receipt Date: 20150727
  Transmission Date: 20151125
  Serious: No
  Sender: FDA-Public Use
  Company Number: US-145663

PATIENT
  Age: 32 Year
  Sex: Male
  Weight: 68.95 kg

DRUGS (2)
  1. BOTULISM  ANTITOXIN [Suspect]
     Active Substance: BOTULISM ANTITOXIN
     Indication: BOTULISM
     Dates: start: 20150422, end: 20150422
  2. NICODERM CQ [Concomitant]
     Active Substance: NICOTINE

REACTIONS (1)
  - Serum sickness [None]

NARRATIVE: CASE EVENT DATE: 20150422
